FAERS Safety Report 9969602 (Version 1)
Quarter: 2014Q1

REPORT INFORMATION
  Report Type: Spontaneous
  Country: US (occurrence: None)
  Receive Date: 20140304
  Receipt Date: 20140304
  Transmission Date: 20141002
  Serious: Yes (Other)
  Sender: FDA-Public Use
  Company Number: 2014P1001621

PATIENT
  Age: 9 Month
  Sex: Female

DRUGS (1)
  1. FOSPHENYTOIN SODIUM [Suspect]
     Indication: CONVULSION
     Route: 042

REACTIONS (11)
  - Pyrexia [None]
  - Upper respiratory tract infection [None]
  - Convulsion [None]
  - Acute respiratory failure [None]
  - Tachycardia [None]
  - Hypotension [None]
  - Pulse abnormal [None]
  - Cardiogenic shock [None]
  - Overdose [None]
  - Congestive cardiomyopathy [None]
  - Myocardial depression [None]
